FAERS Safety Report 22267200 (Version 3)
Quarter: 2023Q2

REPORT INFORMATION
  Report Type: Spontaneous
  Country: CH (occurrence: CH)
  Receive Date: 20230428
  Receipt Date: 20230609
  Transmission Date: 20230721
  Serious: Yes (Other)
  Sender: FDA-Public Use
  Company Number: CH-BoehringerIngelheim-2023-BI-233341

PATIENT
  Age: 46 Year
  Sex: Male
  Weight: 79 kg

DRUGS (20)
  1. OFEV [Suspect]
     Active Substance: NINTEDANIB
     Indication: Hypersensitivity pneumonitis
     Dates: start: 202209
  2. O2 therapy [Concomitant]
     Indication: Product used for unknown indication
     Dosage: 3 L/MIN
     Dates: start: 2020
  3. O2 therapy [Concomitant]
     Dosage: 3 L/MIN  MINIMAL 15HRS/24H
     Dates: start: 202106, end: 202201
  4. O2 therapy [Concomitant]
     Dosage: 3 L/MIN  MINIMAL 16HRS/24H
     Dates: start: 202201, end: 202209
  5. O2 therapy [Concomitant]
     Dosage: 3 L VIA CONCENTRATOR, NIGHTLY, 4L / MIN MOBILE (LIQUID GAS)
     Dates: start: 202209
  6. PREDNISONE [Concomitant]
     Active Substance: PREDNISONE
     Indication: Product used for unknown indication
     Dosage: 1/2-0-0
  7. PREDNISONE [Concomitant]
     Active Substance: PREDNISONE
     Dosage: 1-0-0 FOR TWO WEEKS
     Dates: start: 20210106, end: 20210120
  8. PREDNISONE [Concomitant]
     Active Substance: PREDNISONE
     Dosage: 1-0-0
     Dates: start: 20210121, end: 20210203
  9. PREDNISONE [Concomitant]
     Active Substance: PREDNISONE
     Dosage: 1-0-0
     Dates: start: 20210204
  10. PREDNISONE [Concomitant]
     Active Substance: PREDNISONE
     Dosage: 1-0-0
  11. PREDNISONE [Concomitant]
     Active Substance: PREDNISONE
     Dosage: 1-0-0
     Dates: start: 20210212, end: 20210218
  12. PREDNISONE [Concomitant]
     Active Substance: PREDNISONE
     Dosage: 1-0-0
     Dates: start: 202104, end: 202106
  13. PREDNISONE [Concomitant]
     Active Substance: PREDNISONE
     Dosage: 1.5-0-0 FOR 4 WEEKS
     Dates: start: 202106, end: 202107
  14. PREDNISONE [Concomitant]
     Active Substance: PREDNISONE
     Dosage: 1-0-0-0
     Dates: start: 202107, end: 202204
  15. PREDNISONE [Concomitant]
     Active Substance: PREDNISONE
     Dates: start: 202204
  16. PANTOZOL [Concomitant]
     Active Substance: PANTOPRAZOLE SODIUM
     Indication: Product used for unknown indication
     Dosage: 1-0-0
  17. Calcimagon D3 forte [Concomitant]
     Indication: Product used for unknown indication
     Dosage: 1-0-0
  18. CELLCEPT [Concomitant]
     Active Substance: MYCOPHENOLATE MOFETIL
     Indication: Product used for unknown indication
     Dosage: 2-0-2
     Dates: start: 202104
  19. OLODATEROL HYDROCHLORIDE\TIOTROPIUM BROMIDE MONOHYDRATE [Concomitant]
     Active Substance: OLODATEROL HYDROCHLORIDE\TIOTROPIUM BROMIDE MONOHYDRATE
     Indication: Product used for unknown indication
  20. Makatussin cough syrup [Concomitant]
     Indication: Cough
     Dosage: 20 DROPS, MAX 4X/D IN CASE OF NEED
     Dates: start: 202212

REACTIONS (17)
  - Pulmonary arterial hypertension [Not Recovered/Not Resolved]
  - Pulmonary fibrosis [Not Recovered/Not Resolved]
  - Cor pulmonale [Not Recovered/Not Resolved]
  - Pulmonary hypertension [Not Recovered/Not Resolved]
  - Infection [Unknown]
  - Diarrhoea [Not Recovered/Not Resolved]
  - Decreased appetite [Unknown]
  - Restrictive pulmonary disease [Not Recovered/Not Resolved]
  - Polycythaemia [Unknown]
  - Hypoxia [Unknown]
  - Dyspnoea [Recovered/Resolved]
  - Nasopharyngitis [Recovered/Resolved]
  - Cough [Recovering/Resolving]
  - Dizziness [Recovered/Resolved]
  - Obstructive airways disorder [Not Recovered/Not Resolved]
  - Syncope [Recovered/Resolved]
  - Right ventricular dilatation [Not Recovered/Not Resolved]

NARRATIVE: CASE EVENT DATE: 20220901
